FAERS Safety Report 11154705 (Version 1)
Quarter: 2015Q2

REPORT INFORMATION
  Report Type: Spontaneous
  Country: BR (occurrence: BR)
  Receive Date: 20150602
  Receipt Date: 20150602
  Transmission Date: 20150821
  Serious: Yes (Other)
  Sender: FDA-Public Use
  Company Number: BR-ROCHE-1581843

PATIENT
  Age: 86 Year
  Sex: Female
  Weight: 44 kg

DRUGS (4)
  1. MABTHERA [Suspect]
     Active Substance: RITUXIMAB
     Indication: NON-HODGKIN^S LYMPHOMA
     Route: 042
     Dates: start: 20150520
  2. LEVOID [Concomitant]
     Active Substance: LEVOTHYROXINE
  3. INDAPAMIDE. [Concomitant]
     Active Substance: INDAPAMIDE
  4. COLLYRIUM (UNK INGREDIENTS) [Concomitant]

REACTIONS (6)
  - Drug hypersensitivity [Recovered/Resolved]
  - Flank pain [Recovered/Resolved]
  - Hyperaemia [Recovered/Resolved]
  - Dyspnoea [Recovered/Resolved]
  - Tachycardia [Recovered/Resolved]
  - Oxygen saturation decreased [Recovered/Resolved]
